FAERS Safety Report 7429188-5 (Version None)
Quarter: 2011Q2

REPORT INFORMATION
  Report Type: 
  Country: None (occurrence: None)
  Receive Date: 20110421
  Receipt Date: 20110412
  Transmission Date: 20111010
  Serious: Yes (Other)
  Sender: FDA-Public Use
  Company Number: JP-ROCHE-771948

PATIENT
  Sex: Male
  Weight: 3 kg

DRUGS (2)
  1. FLU VACCINATION [Concomitant]
  2. OSELTAMIVIR [Suspect]
     Indication: INFLUENZA
     Route: 064
     Dates: start: 20091130, end: 20091204

REACTIONS (3)
  - CARDIAC MURMUR [None]
  - PULMONARY ARTERY STENOSIS [None]
  - DRUG EXPOSURE DURING PREGNANCY [None]
